FAERS Safety Report 25522524 (Version 1)
Quarter: 2025Q3

REPORT INFORMATION
  Report Type: Report from Study
  Country: EU (occurrence: EU)
  Receive Date: 20250707
  Receipt Date: 20250707
  Transmission Date: 20251020
  Serious: Yes (Death)
  Sender: CELLTRION
  Company Number: EU-ROCHE-3569322

PATIENT

DRUGS (9)
  1. BEVACIZUMAB [Suspect]
     Active Substance: BEVACIZUMAB
     Indication: Hepatocellular carcinoma
     Route: 065
     Dates: start: 20221104
  2. ATEZOLIZUMAB [Suspect]
     Active Substance: ATEZOLIZUMAB
     Indication: Hepatocellular carcinoma
     Route: 042
     Dates: start: 20221104
  3. PACLITAXEL [Concomitant]
     Active Substance: PACLITAXEL
     Route: 042
  4. ETOPOSIDE [Concomitant]
     Active Substance: ETOPOSIDE
  5. CARBOPLATIN [Concomitant]
     Active Substance: CARBOPLATIN
  6. ETOPOSIDE [Concomitant]
     Active Substance: ETOPOSIDE
  7. OXYCODONE [Concomitant]
     Active Substance: OXYCODONE
     Dates: start: 20230309
  8. NALOXONE [Concomitant]
     Active Substance: NALOXONE
     Dates: start: 20230309
  9. OXYCODONE [Concomitant]
     Active Substance: OXYCODONE
     Dates: start: 20230309

REACTIONS (4)
  - Death [Fatal]
  - Epistaxis [Recovered/Resolved]
  - Asthenia [Recovered/Resolved]
  - Intentional product use issue [Unknown]

NARRATIVE: CASE EVENT DATE: 20230713
